FAERS Safety Report 7396310-9 (Version None)
Quarter: 2011Q2

REPORT INFORMATION
  Report Type: 
  Country: None (occurrence: None)
  Receive Date: 20110406
  Receipt Date: 20110401
  Transmission Date: 20111010
  Serious: Yes (Death, Other)
  Sender: FDA-Public Use
  Company Number: US-AMGEN-USASP2011015014

PATIENT
  Age: 48 Year
  Sex: Male

DRUGS (3)
  1. NPLATE [Suspect]
     Indication: IDIOPATHIC THROMBOCYTOPENIC PURPURA
     Dosage: UNK
     Dates: start: 20100930, end: 20110125
  2. GLEEVEC [Concomitant]
  3. CORTICOSTEROIDS [Concomitant]

REACTIONS (4)
  - PLATELET COUNT DECREASED [None]
  - SEPSIS [None]
  - BRAIN NEOPLASM [None]
  - PNEUMONIA [None]
